FAERS Safety Report 14458498 (Version 4)
Quarter: 2018Q3

REPORT INFORMATION
  Report Type: Spontaneous
  Country: US (occurrence: US)
  Receive Date: 20180130
  Receipt Date: 20180924
  Transmission Date: 20181010
  Serious: Yes (Other)
  Sender: FDA-Public Use
  Company Number: US-DSJP-DSU-2017-147322

PATIENT

DRUGS (1)
  1. BENICAR HCT [Suspect]
     Active Substance: HYDROCHLOROTHIAZIDE\OLMESARTAN MEDOXOMIL
     Indication: HYPERTENSION
     Dosage: 40?25 MG, QD
     Route: 048
     Dates: start: 20130101, end: 20161011

REACTIONS (6)
  - Large intestine polyp [Recovered/Resolved]
  - Constipation [Recovering/Resolving]
  - Haemorrhoids [Unknown]
  - Peptic ulcer [Unknown]
  - Diverticulitis [Recovered/Resolved]
  - Gastritis [Recovered/Resolved]

NARRATIVE: CASE EVENT DATE: 2010
